FAERS Safety Report 13136151 (Version 1)
Quarter: 2017Q1

REPORT INFORMATION
  Report Type: Spontaneous
  Country: CZ (occurrence: CZ)
  Receive Date: 20170121
  Receipt Date: 20170121
  Transmission Date: 20170428
  Serious: Yes (Death, Life-Threatening, Other)
  Sender: FDA-Public Use
  Company Number: CZ-ACCORD-047551

PATIENT
  Age: 63 Year
  Sex: Male

DRUGS (8)
  1. TACROLIMUS. [Suspect]
     Active Substance: TACROLIMUS
     Indication: HEART TRANSPLANT
     Dosage: DOSE REDUCED THEN TEMPORARILY DISCONTINUED THEN REINTRODUCED IN REDUCED DOSE TO 1 MG DAILY
  2. PREDNISONE. [Suspect]
     Active Substance: PREDNISONE
     Indication: HEART TRANSPLANT
     Dosage: REDUCED TO 20 MG TWICE DAILY THEN 20 + 10 MG THEN ONLY 10 MG
  3. VANCOMYCIN [Concomitant]
     Active Substance: VANCOMYCIN
     Indication: SEPSIS
  4. MYCOPHENOLIC ACID. [Suspect]
     Active Substance: MYCOPHENOLIC ACID
     Indication: HEART TRANSPLANT
     Dosage: DOSE REDUCED TO 500 MG TWICE DAILY
  5. PIPERACILLIN/TAZOBACTAM [Concomitant]
     Indication: CYTOMEGALOVIRUS INFECTION
     Route: 042
  6. VALGANCICLOVIR/VALGANCICLOVIR HYDROCHLORIDE [Concomitant]
     Indication: CYTOMEGALOVIRUS INFECTION
  7. VORICONAZOLE. [Concomitant]
     Active Substance: VORICONAZOLE
     Indication: ASPERGILLUS INFECTION
     Dosage: REDUCE VORICONAZOLE DUE TO TOXIC LEVELS OF 5 MG/L TO DOSE OF 300 MG/DAY
     Dates: start: 20120525
  8. AMPHOTERICIN B/AMPHOTERICIN B/LIPOSOME [Concomitant]
     Indication: CYTOMEGALOVIRUS INFECTION

REACTIONS (4)
  - Leukopenia [Not Recovered/Not Resolved]
  - Bronchopulmonary aspergillosis [Fatal]
  - Sepsis [Fatal]
  - Neutropenia [Not Recovered/Not Resolved]
